FAERS Safety Report 6203783-3 (Version None)
Quarter: 2009Q2

REPORT INFORMATION
  Report Type: 
  Country: None (occurrence: None)
  Receive Date: 20090527
  Receipt Date: 20090514
  Transmission Date: 20091009
  Serious: Yes (Hospitalization, Other)
  Sender: FDA-Public Use
  Company Number: US-ELI_LILLY_AND_COMPANY-US200905002594

PATIENT
  Sex: Female

DRUGS (7)
  1. HUMALOG MIX 75/25 [Suspect]
  2. HUMULIN 70/30 [Suspect]
  3. HUMULIN 70/30 [Suspect]
  4. HUMULIN R [Suspect]
  5. NOVOLIN [Concomitant]
  6. XANAX [Concomitant]
  7. LYRICA [Concomitant]

REACTIONS (3)
  - BLOOD GLUCOSE DECREASED [None]
  - BLOOD GLUCOSE INCREASED [None]
  - NEUROPATHY PERIPHERAL [None]
